FAERS Safety Report 5873520-0 (Version None)
Quarter: 2008Q3

REPORT INFORMATION
  Report Type: 
  Country: None (occurrence: None)
  Receive Date: 20080908
  Receipt Date: 20080901
  Transmission Date: 20090109
  Serious: Yes (Other)
  Sender: FDA-Public Use
  Company Number: GB-ABBOTT-08P-167-0469892-00

PATIENT
  Sex: Male

DRUGS (7)
  1. HUMIRA [Suspect]
     Indication: RHEUMATOID ARTHRITIS
     Route: 058
     Dates: start: 20050629, end: 20080807
  2. GLICLAZIDE [Concomitant]
     Indication: DRUG USE FOR UNKNOWN INDICATION
     Route: 048
  3. METFORMIN HCL [Concomitant]
     Indication: DRUG USE FOR UNKNOWN INDICATION
     Route: 048
  4. ROSIGLITAZONE [Concomitant]
     Indication: DRUG USE FOR UNKNOWN INDICATION
     Route: 048
  5. SIMVASTATIN [Concomitant]
     Indication: DRUG USE FOR UNKNOWN INDICATION
  6. NIZATIDINE [Concomitant]
     Indication: DRUG USE FOR UNKNOWN INDICATION
  7. INHALERS [Concomitant]
     Indication: DRUG USE FOR UNKNOWN INDICATION

REACTIONS (3)
  - HAEMOPTYSIS [None]
  - LOWER RESPIRATORY TRACT INFECTION [None]
  - NIGHT SWEATS [None]
